FAERS Safety Report 5669306-2 (Version None)
Quarter: 2008Q1

REPORT INFORMATION
  Report Type: 
  Country: None (occurrence: None)
  Receive Date: 20080317
  Receipt Date: 20080307
  Transmission Date: 20080703
  Serious: Yes (Hospitalization)
  Sender: FDA-Public Use
  Company Number: PHBS2008IT02615

PATIENT
  Age: 39 Year
  Sex: Female

DRUGS (2)
  1. VOLTAREN [Suspect]
     Indication: INFLUENZA
     Dosage: 25 MG/DAY
     Route: 048
     Dates: start: 20080217, end: 20080217
  2. ACETAMINOPHEN [Suspect]
     Indication: INFLUENZA
     Dosage: 500 MG/DAY
     Route: 048
     Dates: start: 20080217, end: 20080217

REACTIONS (10)
  - BURNING SENSATION [None]
  - CONJUNCTIVITIS [None]
  - ERYTHEMA [None]
  - FACE OEDEMA [None]
  - HYPERPYREXIA [None]
  - OEDEMA MUCOSAL [None]
  - SKIN DISORDER [None]
  - SKIN EXFOLIATION [None]
  - SKIN REACTION [None]
  - STEVENS-JOHNSON SYNDROME [None]
